FAERS Safety Report 12722342 (Version 2)
Quarter: 2016Q3

REPORT INFORMATION
  Report Type: Spontaneous
  Country: CN (occurrence: CN)
  Receive Date: 20160907
  Receipt Date: 20160921
  Transmission Date: 20161109
  Serious: Yes (Hospitalization)
  Sender: FDA-Public Use
  Company Number: CN-ELI_LILLY_AND_COMPANY-CN201608013615

PATIENT
  Sex: Female
  Weight: 52 kg

DRUGS (3)
  1. GLICLAZIDE [Concomitant]
     Active Substance: GLICLAZIDE
     Dosage: 30 MG, QD
     Route: 065
  2. MELBIN                             /00082702/ [Concomitant]
     Active Substance: METFORMIN HYDROCHLORIDE
     Dosage: 1.5 DF, QD
     Route: 065
  3. HUMULIN N [Suspect]
     Active Substance: INSULIN HUMAN
     Indication: DIABETES MELLITUS
     Dosage: 10 , QD
     Route: 058
     Dates: start: 2014

REACTIONS (2)
  - Pneumonia [Recovered/Resolved]
  - Weight increased [Unknown]
